FAERS Safety Report 24296050 (Version 1)
Quarter: 2024Q3

REPORT INFORMATION
  Report Type: Spontaneous
  Country: US (occurrence: US)
  Receive Date: 20240909
  Receipt Date: 20240909
  Transmission Date: 20241017
  Serious: No
  Sender: MICRO LABS
  Company Number: US-862174955-ML2024-04710

PATIENT
  Age: 42 Year
  Sex: Female
  Weight: 72.57 kg

DRUGS (4)
  1. METHENAMINE HIPPURATE [Suspect]
     Active Substance: METHENAMINE HIPPURATE
     Indication: Prophylaxis urinary tract infection
     Route: 048
     Dates: start: 202407, end: 20240828
  2. FAMOTIDINE [Concomitant]
     Active Substance: FAMOTIDINE
     Indication: Product used for unknown indication
  3. LEVOTHYROXINE [Concomitant]
     Active Substance: LEVOTHYROXINE\LEVOTHYROXINE SODIUM
     Indication: Hypothyroidism
  4. TYRAMINE [Concomitant]
     Active Substance: TYRAMINE
     Indication: Product used for unknown indication

REACTIONS (2)
  - Muscle spasms [Not Recovered/Not Resolved]
  - Peripheral swelling [Not Recovered/Not Resolved]

NARRATIVE: CASE EVENT DATE: 20240808
